FAERS Safety Report 15629474 (Version 1)
Quarter: 2018Q4

REPORT INFORMATION
  Report Type: Report from Study
  Country: CN (occurrence: CN)
  Receive Date: 20181117
  Receipt Date: 20181117
  Transmission Date: 20190205
  Serious: Yes (Other)
  Sender: FDA-Public Use
  Company Number: CN-ROCHE-2212927

PATIENT

DRUGS (3)
  1. PEMETREXED. [Suspect]
     Active Substance: PEMETREXED
     Indication: NON-SMALL CELL LUNG CANCER
     Dosage: ON DAY 1 OF THE TREATMENT CYCLE; 2 CYCLES (28 DAYS/CYCLE).
     Route: 042
  2. BEVACIZUMAB. [Suspect]
     Active Substance: BEVACIZUMAB
     Indication: NON-SMALL CELL LUNG CANCER
     Dosage: MIXED WITH 100.0 ML OF 0.9% NACL SOLUTION FOR THE FIRST INFUSION TIME OVER 90.0 MIN, THEN THE INFUSI
     Route: 041
  3. CISPLATIN. [Suspect]
     Active Substance: CISPLATIN
     Indication: NON-SMALL CELL LUNG CANCER
     Dosage: ON DAY 1 AND DAY 3 OF THE TREATMENT CYCLE; 2 CYCLES (28 DAYS/CYCLE).
     Route: 042

REACTIONS (1)
  - Renal impairment [Unknown]
